FAERS Safety Report 4881905-4 (Version None)
Quarter: 2006Q1

REPORT INFORMATION
  Report Type: 
  Country: None (occurrence: None)
  Receive Date: 20060117
  Receipt Date: 20060109
  Transmission Date: 20060701
  Serious: Yes (Other)
  Sender: FDA-Public Use
  Company Number: PHNU2006DE00474

PATIENT
  Age: 85 Year
  Sex: Female

DRUGS (14)
  1. ZOMETA [Suspect]
     Indication: METASTASES TO BONE
     Dosage: 4 MG, QMO
     Route: 042
     Dates: start: 20041001
  2. VINORELBINE [Suspect]
     Dosage: 46 MG FOR 8 DAYS
     Dates: start: 20040901
  3. PASPERTIN [Suspect]
     Dosage: 20 MG, UNK
     Route: 042
  4. SODIUM CHLORIDE [Concomitant]
     Route: 065
  5. SINQUAN [Concomitant]
     Dosage: 10 MG, QD
     Route: 048
  6. TEBONIN [Concomitant]
     Dosage: 20 MG, TID
     Route: 048
  7. PANTOZOL [Concomitant]
     Dosage: 40 MG, QD
     Route: 065
  8. KEVATRIL [Concomitant]
     Dosage: 1 MG, UNK
     Route: 042
  9. ZOLPIDEM TARTRATE [Concomitant]
     Dosage: UNK, PRN
     Route: 048
  10. PARACODIN BITARTRATE TAB [Concomitant]
     Dosage: UNK, PRN
     Route: 048
  11. APONAL [Concomitant]
     Dosage: 10 MG, QD
     Route: 065
  12. NOVALGIN [Concomitant]
     Dosage: 20 DRP, PRN
     Route: 048
  13. MOVICOL [Concomitant]
     Dosage: UNK, PRN
     Route: 048
  14. ORTHOMOL [Concomitant]
     Route: 065

REACTIONS (27)
  - ALOPECIA [None]
  - ASTHENIA [None]
  - BRONCHITIS [None]
  - CONSTIPATION [None]
  - COUGH [None]
  - DECREASED APPETITE [None]
  - DEPRESSION [None]
  - DIZZINESS [None]
  - FATIGUE [None]
  - FOOT FRACTURE [None]
  - INJECTION SITE PHLEBITIS [None]
  - INJECTION SITE THROMBOSIS [None]
  - MALIGNANT NEOPLASM PROGRESSION [None]
  - NAUSEA [None]
  - OEDEMA PERIPHERAL [None]
  - PAIN IN EXTREMITY [None]
  - PARAESTHESIA [None]
  - PATHOLOGICAL FRACTURE [None]
  - SCIATICA [None]
  - SLEEP DISORDER [None]
  - SPUTUM DISCOLOURED [None]
  - STRESS FRACTURE [None]
  - SWELLING [None]
  - TENDERNESS [None]
  - THROMBOPHLEBITIS [None]
  - VENOUS THROMBOSIS [None]
  - WHEEZING [None]
